FAERS Safety Report 15654653 (Version 1)
Quarter: 2018Q4

REPORT INFORMATION
  Report Type: Spontaneous
  Country: US (occurrence: US)
  Receive Date: 20181126
  Receipt Date: 20181126
  Transmission Date: 20190205
  Serious: Yes (Hospitalization, Other)
  Sender: FDA-Public Use
  Company Number: US-ZYDUS-030576

PATIENT
  Age: 1 Day
  Sex: Male
  Weight: .89 kg

DRUGS (9)
  1. ACETYLCYSTEINE. [Suspect]
     Active Substance: ACETYLCYSTEINE
     Indication: PRODUCT USED FOR UNKNOWN INDICATION
     Dosage: 6.25 MG/KG/H MIXED IN D5W FOR 16 H.
     Route: 042
  2. ACETYLCYSTEINE. [Suspect]
     Active Substance: ACETYLCYSTEINE
     Indication: PRODUCT USED FOR UNKNOWN INDICATION
     Dosage: IV ACETYLCYSTEINE 89.5MG MIXED IN 1.79ML OF 5% GLUCOSE IN WATER OVER 16H.
     Route: 042
  3. METHADONE [Suspect]
     Active Substance: METHADONE HYDROCHLORIDE
     Indication: PRODUCT USED FOR UNKNOWN INDICATION
     Route: 064
  4. PHENCYCLIDINE/PHENCYCLIDINE HYDROCHLORIDE [Suspect]
     Active Substance: PHENCYCLIDINE\PHENCYCLIDINE HYDROCHLORIDE
     Indication: PRODUCT USED FOR UNKNOWN INDICATION
     Route: 064
  5. PARACETAMOL [Suspect]
     Active Substance: ACETAMINOPHEN
     Indication: PRODUCT USED FOR UNKNOWN INDICATION
     Route: 064
  6. GLUCOSE [Concomitant]
     Active Substance: DEXTROSE
     Indication: PRODUCT USED FOR UNKNOWN INDICATION
     Route: 042
  7. ACETYLCYSTEINE. [Suspect]
     Active Substance: ACETYLCYSTEINE
     Indication: PRODUCT USED FOR UNKNOWN INDICATION
     Dosage: ACETYLCYSTEINE 134.5MG MIXED IN 2.7 ML OF 5% GLUCOSE IN WATER OVER AN HOUR
     Route: 042
  8. OXYCODONE [Suspect]
     Active Substance: OXYCODONE
     Indication: PRODUCT USED FOR UNKNOWN INDICATION
     Route: 064
  9. ACETYLCYSTEINE. [Suspect]
     Active Substance: ACETYLCYSTEINE
     Indication: PRODUCT USED FOR UNKNOWN INDICATION
     Dosage: IV ACETYLCYSTEINE 44.75MG MIXED IN 0.895ML OF 5% GLUCOSE IN WATER OVER 4H
     Route: 042

REACTIONS (3)
  - Drug withdrawal syndrome [Recovered/Resolved]
  - Pulmonary oedema neonatal [Recovered/Resolved]
  - Foetal exposure during pregnancy [Recovered/Resolved]
